FAERS Safety Report 5757509-8 (Version None)
Quarter: 2008Q2

REPORT INFORMATION
  Report Type: 
  Country: None (occurrence: None)
  Receive Date: 20080529
  Receipt Date: 20080521
  Transmission Date: 20081010
  Serious: Yes (Other)
  Sender: FDA-Public Use
  Company Number: 2008013453

PATIENT
  Age: 55 Year
  Sex: Male

DRUGS (2)
  1. REACTINE (CERITIZINE HYDROCHLORIDE) [Suspect]
     Dosage: ORAL
     Route: 048
  2. DRUG, UNSPECIFIED (DRUG, UNSPECIFIED) [Suspect]

REACTIONS (1)
  - MYOCARDIAL INFARCTION [None]
